FAERS Safety Report 5973955-1 (Version None)
Quarter: 2008Q4

REPORT INFORMATION
  Report Type: 
  Country: None (occurrence: None)
  Receive Date: 20081201
  Receipt Date: 20081124
  Transmission Date: 20090506
  Serious: Yes (Hospitalization, Other)
  Sender: FDA-Public Use
  Company Number: SG-BAYER-200828000GPV

PATIENT
  Age: 64 Year
  Sex: Male

DRUGS (3)
  1. SORAFENIB [Suspect]
     Indication: HEPATIC NEOPLASM MALIGNANT NON-RESECTABLE
     Route: 048
     Dates: start: 20080823, end: 20080101
  2. SORAFENIB [Suspect]
     Route: 048
     Dates: start: 20080101, end: 20081109
  3. GLYBURIDE [Concomitant]
     Indication: DRUG USE FOR UNKNOWN INDICATION
     Route: 048

REACTIONS (8)
  - ABDOMINAL DISTENSION [None]
  - BLISTER [None]
  - CONFUSIONAL STATE [None]
  - HEPATIC ENCEPHALOPATHY [None]
  - HYPERBILIRUBINAEMIA [None]
  - JAUNDICE [None]
  - OEDEMA PERIPHERAL [None]
  - VOMITING [None]
